FAERS Safety Report 7540935-4 (Version None)
Quarter: 2011Q2

REPORT INFORMATION
  Report Type: 
  Country: None (occurrence: None)
  Receive Date: 20110610
  Receipt Date: 20110526
  Transmission Date: 20111010
  Serious: No
  Sender: FDA-Public Use
  Company Number: US-B.I. PHARMACEUTICALS,INC./RIDGEFIELD-2011-BP-14117BP

PATIENT
  Sex: Male

DRUGS (3)
  1. OMEPRAZOLE [Concomitant]
     Indication: GASTROOESOPHAGEAL REFLUX DISEASE
  2. PRADAXA [Suspect]
     Indication: ATRIAL FIBRILLATION
     Dosage: 300 MG
     Route: 048
     Dates: start: 20110513, end: 20110516
  3. PRADAXA [Suspect]
     Dosage: 300 MG
     Route: 048
     Dates: start: 20110519

REACTIONS (2)
  - GASTROOESOPHAGEAL REFLUX DISEASE [None]
  - ODYNOPHAGIA [None]
